FAERS Safety Report 9362654 (Version 1)
Quarter: 2013Q2

REPORT INFORMATION
  Report Type: Spontaneous
  Country: US (occurrence: US)
  Receive Date: 20130622
  Receipt Date: 20130622
  Transmission Date: 20140414
  Serious: No
  Sender: FDA-Public Use
  Company Number: US-US-EMD SERONO, INC.-7072434

PATIENT
  Sex: Female

DRUGS (2)
  1. REBIF [Suspect]
     Indication: PRODUCT USED FOR UNKNOWN INDICATION
     Route: 058
     Dates: start: 20041023
  2. REBIF [Suspect]
     Route: 058
     Dates: start: 201107, end: 20110714

REACTIONS (2)
  - Abortion induced [Recovered/Resolved]
  - Maternal exposure timing unspecified [Recovered/Resolved]
